FAERS Safety Report 4301423-1 (Version None)
Quarter: 2004Q1

REPORT INFORMATION
  Report Type: 
  Country: None (occurrence: None)
  Receive Date: 20040219
  Receipt Date: 20040209
  Transmission Date: 20041129
  Serious: Yes (Other)
  Sender: FDA-Public Use
  Company Number: 2004198119DE

PATIENT
  Sex: Female

DRUGS (1)
  1. BEXTRA [Suspect]
     Indication: SPINAL DISORDER
     Dosage: ORAL
     Route: 048
     Dates: start: 20031201

REACTIONS (1)
  - PANCREATITIS [None]
